FAERS Safety Report 16435974 (Version 1)
Quarter: 2019Q2

REPORT INFORMATION
  Report Type: Spontaneous
  Country: US (occurrence: US)
  Receive Date: 20190614
  Receipt Date: 20190614
  Transmission Date: 20190711
  Serious: No
  Sender: FDA-Public Use
  Company Number: US-JNJFOC-20170523831

PATIENT
  Age: 53 Year
  Sex: Female
  Weight: 75.3 kg

DRUGS (2)
  1. TYLENOL 8 HR ARTHRITIS PAIN [Suspect]
     Active Substance: ACETAMINOPHEN
     Route: 048
  2. TYLENOL 8 HR ARTHRITIS PAIN [Suspect]
     Active Substance: ACETAMINOPHEN
     Indication: PAIN
     Dosage: EVERY 5-6 HOURS
     Route: 048
     Dates: start: 20170509, end: 201705

REACTIONS (9)
  - Diarrhoea [Recovering/Resolving]
  - Lymphadenopathy [Recovering/Resolving]
  - Incorrect dose administered [Recovering/Resolving]
  - Inappropriate schedule of product administration [Recovering/Resolving]
  - Hypersensitivity [Recovering/Resolving]
  - Swollen tongue [Recovering/Resolving]
  - Feeling abnormal [Recovering/Resolving]
  - Nausea [Recovering/Resolving]
  - Vomiting [Recovering/Resolving]

NARRATIVE: CASE EVENT DATE: 20170509
